FAERS Safety Report 23442444 (Version 6)
Quarter: 2025Q2

REPORT INFORMATION
  Report Type: Report from Study
  Country: CN (occurrence: CN)
  Receive Date: 20240125
  Receipt Date: 20250411
  Transmission Date: 20250717
  Serious: Yes (Hospitalization, Other)
  Sender: RANBAXY
  Company Number: CN-SUN PHARMACEUTICAL INDUSTRIES LTD-2024R1-428937

PATIENT
  Age: 65 Year
  Sex: Male
  Weight: 59.5 kg

DRUGS (8)
  1. SONIDEGIB [Suspect]
     Active Substance: SONIDEGIB
     Indication: Basal cell carcinoma
     Dosage: 200 MILLIGRAM, QD
     Route: 048
     Dates: start: 20231016, end: 20231129
  2. SONIDEGIB [Suspect]
     Active Substance: SONIDEGIB
     Dosage: 200 MILLIGRAM, QD
     Route: 048
     Dates: start: 20231207, end: 20231211
  3. SONIDEGIB [Suspect]
     Active Substance: SONIDEGIB
     Dosage: 200 MILLIGRAM, QD
     Route: 048
     Dates: start: 20231214, end: 20240111
  4. SONIDEGIB [Suspect]
     Active Substance: SONIDEGIB
     Dosage: 200 MILLIGRAM, QD
     Route: 048
     Dates: start: 20240113, end: 20240127
  5. SONIDEGIB [Suspect]
     Active Substance: SONIDEGIB
     Dosage: 200 MILLIGRAM, QD
     Route: 048
     Dates: start: 20240129, end: 20240316
  6. SONIDEGIB [Suspect]
     Active Substance: SONIDEGIB
     Dosage: 200 MILLIGRAM, QD
     Route: 048
     Dates: start: 20240402, end: 20241014
  7. Irbesartan; hydrochlorothiazide [Concomitant]
     Indication: Hypertension
     Dosage: 15 MILLIGRAM, QD
     Route: 048
     Dates: start: 20231014, end: 20240110
  8. MUPIROCIN [Concomitant]
     Active Substance: MUPIROCIN
     Indication: Lip pain
     Dosage: 1 GRAM, BID/EXTERNAL USE
     Route: 061
     Dates: start: 20240108, end: 20241017

REACTIONS (10)
  - Bronchitis [Recovered/Resolved]
  - Arrhythmia [Recovering/Resolving]
  - Blood creatinine increased [Recovered/Resolved]
  - Dizziness [Recovering/Resolving]
  - Electrocardiogram T wave abnormal [Recovering/Resolving]
  - Muscle spasms [Not Recovered/Not Resolved]
  - Lip pain [Recovering/Resolving]
  - Decreased appetite [Recovering/Resolving]
  - Chronic gastritis [Recovered/Resolved]
  - Electrocardiogram ST segment [Recovering/Resolving]

NARRATIVE: CASE EVENT DATE: 20231113
